FAERS Safety Report 8701488 (Version 2)
Quarter: 2013Q4

REPORT INFORMATION
  Report Type: Spontaneous
  Country: US (occurrence: US)
  Receive Date: 20120802
  Receipt Date: 20131107
  Transmission Date: 20140711
  Serious: Yes (Other)
  Sender: FDA-Public Use
  Company Number: US-009507513-1207USA009985

PATIENT
  Sex: Female

DRUGS (6)
  1. ZOCOR [Suspect]
     Route: 048
  2. LEVAQUIN [Suspect]
  3. NORVASC [Suspect]
     Route: 048
  4. AMLODIPINE BESYLATE [Suspect]
     Route: 048
  5. MEDROL [Suspect]
  6. XANAX [Concomitant]

REACTIONS (12)
  - Urticaria [Unknown]
  - Transient ischaemic attack [Unknown]
  - Drug dispensing error [Unknown]
  - Drug hypersensitivity [Unknown]
  - Palpitations [Unknown]
  - Feeling abnormal [Unknown]
  - Calcinosis [Unknown]
  - Vitamin D decreased [Unknown]
  - Joint swelling [Unknown]
  - Hypertension [Unknown]
  - Arterial disorder [Unknown]
  - Dizziness [Unknown]
